FAERS Safety Report 10779432 (Version 3)
Quarter: 2015Q1

REPORT INFORMATION
  Report Type: Spontaneous
  Country: US (occurrence: US)
  Receive Date: 20150210
  Receipt Date: 20150218
  Transmission Date: 20150721
  Serious: Yes (Hospitalization, Other)
  Sender: FDA-Public Use
  Company Number: US-RB-073181-15

PATIENT
  Age: 63 Year
  Sex: Female

DRUGS (1)
  1. DELSYM [Suspect]
     Active Substance: DEXTROMETHORPHAN
     Indication: COUGH
     Dosage: DRANK THE DRUG EVERY TIME SHE COUGHED. SHE LAST TOOK THE DRUG ON 30-JAN-2015.
     Route: 048
     Dates: start: 20150129

REACTIONS (4)
  - Overdose [Recovered/Resolved]
  - Delirium [Recovered/Resolved]
  - Feeling abnormal [Recovered/Resolved]
  - Off label use [Recovered/Resolved]

NARRATIVE: CASE EVENT DATE: 20150129
